FAERS Safety Report 7334768-1 (Version None)
Quarter: 2011Q1

REPORT INFORMATION
  Report Type: 
  Country: None (occurrence: None)
  Receive Date: 20110307
  Receipt Date: 20110224
  Transmission Date: 20110831
  Serious: Yes (Hospitalization)
  Sender: FDA-Public Use
  Company Number: US-JNJFOC-20100405557

PATIENT
  Sex: Female
  Weight: 64.5 kg

DRUGS (8)
  1. USTEKINUMAB [Suspect]
     Route: 058
  2. USTEKINUMAB [Suspect]
     Indication: PSORIASIS
     Route: 058
  3. USTEKINUMAB [Suspect]
     Route: 058
  4. ESTRACE [Concomitant]
     Route: 048
  5. EXCEDRIN NOS [Concomitant]
     Route: 048
  6. TOPROL-XL [Concomitant]
     Route: 048
  7. PRILOSEC [Concomitant]
     Route: 048
  8. FLORINEF [Concomitant]
     Route: 048

REACTIONS (19)
  - CLOSTRIDIUM DIFFICILE COLITIS [None]
  - DIZZINESS [None]
  - CHEST PAIN [None]
  - GASTROOESOPHAGEAL REFLUX DISEASE [None]
  - GASTROENTERITIS VIRAL [None]
  - SINUSITIS [None]
  - NASOPHARYNGITIS [None]
  - EAR INFECTION [None]
  - BRONCHITIS [None]
  - HEADACHE [None]
  - DYSPEPSIA [None]
  - INSOMNIA [None]
  - SYNCOPE [None]
  - BLOOD PRESSURE INCREASED [None]
  - DIARRHOEA [None]
  - DEHYDRATION [None]
  - GLUCOSE TOLERANCE INCREASED [None]
  - HEPATIC CYST [None]
  - ORAL HERPES [None]
